FAERS Safety Report 4545195-4 (Version None)
Quarter: 2004Q4

REPORT INFORMATION
  Report Type: 
  Country: None (occurrence: None)
  Receive Date: 20041222
  Receipt Date: 20040824
  Transmission Date: 20050328
  Serious: Yes (Hospitalization, Disabling)
  Sender: FDA-Public Use
  Company Number: USA040876453

PATIENT
  Age: 59 Year
  Sex: Male
  Weight: 92 kg

DRUGS (4)
  1. HUMULIN R [Suspect]
  2. HUMALOG [Suspect]
     Indication: DIABETES MELLITUS NON-INSULIN-DEPENDENT
     Dates: start: 20040201
  3. HUMULIN N [Concomitant]
  4. AMARYL [Concomitant]

REACTIONS (8)
  - BLINDNESS [None]
  - BLOOD GLUCOSE INCREASED [None]
  - BRAIN STEM HAEMORRHAGE [None]
  - HYPOAESTHESIA [None]
  - INJECTION SITE BURNING [None]
  - MOBILITY DECREASED [None]
  - SPEECH DISORDER [None]
  - WEIGHT INCREASED [None]
